FAERS Safety Report 9753858 (Version 1)
Quarter: 2013Q4

REPORT INFORMATION
  Report Type: Spontaneous
  Country: US (occurrence: US)
  Receive Date: 20131213
  Receipt Date: 20131213
  Transmission Date: 20140711
  Serious: No
  Sender: FDA-Public Use
  Company Number: US-GILEAD-2010-0027751

PATIENT
  Age: 66 Year
  Sex: Female

DRUGS (7)
  1. LETAIRIS [Suspect]
     Indication: PULMONARY ARTERIAL HYPERTENSION
     Route: 048
     Dates: start: 20100130, end: 20100225
  2. VIAGRA [Concomitant]
  3. LASIX [Concomitant]
  4. COZAAR [Concomitant]
  5. NORVASC [Concomitant]
  6. OSCAL [Concomitant]
  7. FOLIC ACID [Concomitant]

REACTIONS (5)
  - Heart rate irregular [Unknown]
  - Nasal dryness [Unknown]
  - Palpitations [Unknown]
  - Constipation [Unknown]
  - Nasal congestion [Recovered/Resolved]
